FAERS Safety Report 9455456 (Version 1)
Quarter: 2013Q3

REPORT INFORMATION
  Report Type: Report from Study
  Country: CA (occurrence: CA)
  Receive Date: 20130813
  Receipt Date: 20130813
  Transmission Date: 20140515
  Serious: Yes (Life-Threatening)
  Sender: FDA-Public Use
  Company Number: CA-JNJFOC-20130804467

PATIENT
  Age: 38 Year
  Sex: Male
  Weight: 60 kg

DRUGS (12)
  1. REMICADE [Suspect]
     Indication: CROHN^S DISEASE
     Dosage: RESTARTED
     Route: 042
     Dates: start: 20130205
  2. REMICADE [Suspect]
     Indication: CROHN^S DISEASE
     Route: 042
     Dates: start: 20130309
  3. REMICADE [Suspect]
     Indication: CROHN^S DISEASE
     Dosage: STOPPED BY PATIENT
     Route: 042
     Dates: start: 20121112
  4. REMICADE [Suspect]
     Indication: CROHN^S DISEASE
     Route: 042
     Dates: start: 20120918
  5. REMICADE [Suspect]
     Indication: CROHN^S DISEASE
     Route: 042
     Dates: start: 20120725
  6. REMICADE [Suspect]
     Indication: CROHN^S DISEASE
     Route: 042
     Dates: start: 20120626
  7. REMICADE [Suspect]
     Indication: CROHN^S DISEASE
     Route: 042
     Dates: start: 20120614
  8. REMICADE [Suspect]
     Indication: CROHN^S DISEASE
     Route: 042
     Dates: start: 2012
  9. IMURAN [Suspect]
     Indication: PRODUCT USED FOR UNKNOWN INDICATION
     Dosage: TOTAL 7 DOSES, THEN TAKEN OFF
     Route: 048
  10. VITAMIN D [Concomitant]
     Route: 048
  11. FE GLUCONATE [Concomitant]
     Route: 048
  12. PURE ENCAPSULATIONS PROBIOTIC-5 [Concomitant]
     Route: 065

REACTIONS (1)
  - Lymphoma [Unknown]
